FAERS Safety Report 9759219 (Version 1)
Quarter: 2013Q4

REPORT INFORMATION
  Report Type: Spontaneous
  Country: US (occurrence: None)
  Receive Date: 20131216
  Receipt Date: 20131216
  Transmission Date: 20140711
  Serious: Yes (Hospitalization)
  Sender: FDA-Public Use
  Company Number: 163-21880-12110342(0)

PATIENT
  Age: 95 Year
  Sex: Female

DRUGS (1)
  1. REVLIMID (LENALIDOMIDE) (15 MILLIGRAM, CAPSULES) [Suspect]
     Indication: PLASMA CELL MYELOMA
     Dosage: 15 MG, 1 IN 1 D, PO? ? ? ? ? ?

REACTIONS (7)
  - Hyperhidrosis [None]
  - Swelling face [None]
  - Dyspnoea [None]
  - Dizziness [None]
  - Asthenia [None]
  - Decreased appetite [None]
  - Dry mouth [None]
